FAERS Safety Report 4406430-6 (Version None)
Quarter: 2004Q3

REPORT INFORMATION
  Report Type: 
  Country: None (occurrence: None)
  Receive Date: 20040723
  Receipt Date: 20030729
  Transmission Date: 20050211
  Serious: No
  Sender: FDA-Public Use
  Company Number: US-GLAXOSMITHKLINE-A0418655A

PATIENT
  Age: 64 Year
  Sex: Female

DRUGS (7)
  1. AVANDIA [Suspect]
     Dosage: 8MG PER DAY
     Route: 048
     Dates: start: 20030722, end: 20030728
  2. LASIX [Concomitant]
  3. GLUCOTROL XL [Concomitant]
  4. DIOVAN [Concomitant]
  5. LOTREL [Concomitant]
  6. COREG [Concomitant]
  7. LIPITOR [Concomitant]

REACTIONS (3)
  - DECREASED APPETITE [None]
  - OEDEMA PERIPHERAL [None]
  - SWELLING FACE [None]
